FAERS Safety Report 7097831-9 (Version None)
Quarter: 2010Q4

REPORT INFORMATION
  Report Type: 
  Country: None (occurrence: None)
  Receive Date: 20101112
  Receipt Date: 20101103
  Transmission Date: 20110411
  Serious: Yes (Other)
  Sender: FDA-Public Use
  Company Number: US-JNJFOC-20101101559

PATIENT
  Sex: Male

DRUGS (2)
  1. REMICADE [Suspect]
     Indication: ARTHRITIS REACTIVE
     Route: 042
  2. MTX [Concomitant]
     Indication: ANKYLOSING SPONDYLITIS

REACTIONS (6)
  - CARDIOVASCULAR DISORDER [None]
  - CHEST PAIN [None]
  - DIZZINESS [None]
  - DYSPNOEA [None]
  - FEELING HOT [None]
  - VISION BLURRED [None]
